FAERS Safety Report 9009348 (Version 1)
Quarter: 2013Q1

REPORT INFORMATION
  Report Type: Spontaneous
  Country: US (occurrence: US)
  Receive Date: 20130111
  Receipt Date: 20130111
  Transmission Date: 20140127
  Serious: Yes (Other)
  Sender: FDA-Public Use
  Company Number: US-009507513-1301XAA003327

PATIENT
  Age: 19 Year
  Sex: Female

DRUGS (6)
  1. SINGULAIR [Suspect]
     Route: 048
  2. DESLORATADINE [Suspect]
     Route: 048
  3. FORMOTEROL FUMARATE [Suspect]
     Route: 048
  4. SALMETEROL [Suspect]
     Route: 055
  5. ALBUTEROL [Suspect]
     Route: 055
  6. PREDNISOLONE [Concomitant]

REACTIONS (3)
  - Dyspnoea [Unknown]
  - Asthma [Unknown]
  - Drug ineffective [Unknown]
